FAERS Safety Report 8443859-3 (Version None)
Quarter: 2012Q2

REPORT INFORMATION
  Report Type: 
  Country: None (occurrence: None)
  Receive Date: 20120618
  Receipt Date: 20120609
  Transmission Date: 20120825
  Serious: Yes (Hospitalization, Other)
  Sender: FDA-Public Use
  Company Number: US-US-EMD SERONO, INC.-7128883

PATIENT
  Sex: Female
  Weight: 64 kg

DRUGS (4)
  1. REBIF [Suspect]
     Indication: MULTIPLE SCLEROSIS
     Route: 058
     Dates: start: 20081105
  2. PRISTIQ [Concomitant]
     Indication: DEPRESSION
  3. GABAPENTIN [Concomitant]
     Indication: BAND SENSATION
  4. BACLOFEN [Concomitant]
     Indication: MUSCLE SPASMS

REACTIONS (6)
  - SPLENIC ABSCESS [None]
  - ENDOCARDITIS [None]
  - GASTROINTESTINAL DISORDER [None]
  - HEADACHE [None]
  - UPPER RESPIRATORY TRACT INFECTION [None]
  - INJECTION SITE PRURITUS [None]
